FAERS Safety Report 25002412 (Version 1)
Quarter: 2025Q1

REPORT INFORMATION
  Report Type: Report from Study
  Country: US (occurrence: US)
  Receive Date: 20250224
  Receipt Date: 20250224
  Transmission Date: 20250409
  Serious: Yes (Hospitalization, Other)
  Sender: ABBVIE
  Company Number: US-ABBVIE-6143552

PATIENT
  Age: 41 Year
  Sex: Female

DRUGS (1)
  1. RINVOQ [Suspect]
     Active Substance: UPADACITINIB
     Indication: Crohn^s disease
     Route: 048
     Dates: start: 20240823

REACTIONS (5)
  - Ileostomy closure [Recovering/Resolving]
  - Post procedural complication [Recovering/Resolving]
  - Fluid retention [Unknown]
  - White blood cell count increased [Unknown]
  - Pain [Unknown]

NARRATIVE: CASE EVENT DATE: 20250101
